FAERS Safety Report 11718206 (Version 1)
Quarter: 2015Q4

REPORT INFORMATION
  Report Type: Spontaneous
  Country: JP (occurrence: JP)
  Receive Date: 20151110
  Receipt Date: 20151110
  Transmission Date: 20160304
  Serious: Yes (Other)
  Sender: FDA-Public Use
  Company Number: JP-ELI_LILLY_AND_COMPANY-JP201511001678

PATIENT
  Age: 36 Year
  Sex: Female

DRUGS (4)
  1. GEMZAR [Suspect]
     Active Substance: GEMCITABINE HYDROCHLORIDE
     Indication: ENDOMETRIAL STROMAL SARCOMA
     Dosage: 800 MG, OTHER
     Route: 042
  2. GEMZAR [Suspect]
     Active Substance: GEMCITABINE HYDROCHLORIDE
     Indication: ENDOMETRIAL SARCOMA RECURRENT
     Dosage: UNK, OTHER
     Route: 042
  3. DOCETAXEL. [Concomitant]
     Active Substance: DOCETAXEL
     Indication: ENDOMETRIAL STROMAL SARCOMA
     Dosage: 60 MG, OTHER
  4. DOCETAXEL. [Concomitant]
     Active Substance: DOCETAXEL
     Indication: ENDOMETRIAL SARCOMA RECURRENT
     Dosage: UNK, OTHER

REACTIONS (3)
  - Neutropenia [Unknown]
  - Ileus [Unknown]
  - Off label use [Recovered/Resolved]
